FAERS Safety Report 7232420-4 (Version None)
Quarter: 2011Q1

REPORT INFORMATION
  Report Type: 
  Country: None (occurrence: None)
  Receive Date: 20110119
  Receipt Date: 20110110
  Transmission Date: 20110831
  Serious: No
  Sender: FDA-Public Use
  Company Number: US-PFIZER INC-2011005895

PATIENT
  Sex: Male
  Weight: 75.737 kg

DRUGS (3)
  1. SIMVASTATIN [Concomitant]
     Indication: HEART VALVE INCOMPETENCE
     Dosage: 4 MG, 1X/DAY
     Route: 048
  2. BETIMOL [Concomitant]
     Indication: GLAUCOMA
     Dosage: UNK
     Route: 047
  3. XALATAN [Suspect]
     Indication: GLAUCOMA
     Dosage: UNK
     Route: 047
     Dates: start: 20050101

REACTIONS (1)
  - NASOPHARYNGITIS [None]
